FAERS Safety Report 8763949 (Version 1)
Quarter: 2012Q4

REPORT INFORMATION
  Report Type: Spontaneous
  Country: US (occurrence: None)
  Receive Date: 20120831
  Receipt Date: 20120831
  Transmission Date: 20130627
  Serious: Yes (Other)
  Sender: FDA-Public Use
  Company Number: None

PATIENT
  Age: 45 Year
  Sex: Female
  Weight: 63.5 kg

DRUGS (1)
  1. DESLORATADINE [Suspect]
     Route: 048
     Dates: start: 20120723, end: 20120814

REACTIONS (2)
  - Product substitution issue [None]
  - Therapeutic response unexpected with drug substitution [None]
